FAERS Safety Report 8160154-0 (Version None)
Quarter: 2012Q1

REPORT INFORMATION
  Report Type: 
  Country: None (occurrence: None)
  Receive Date: 20120223
  Receipt Date: 20120214
  Transmission Date: 20120608
  Serious: Yes (Other)
  Sender: FDA-Public Use
  Company Number: US-ELI_LILLY_AND_COMPANY-US201202004484

PATIENT
  Age: 51 Year
  Sex: Male

DRUGS (6)
  1. EFFIENT [Suspect]
     Indication: ACUTE MYOCARDIAL INFARCTION
     Dosage: 30 MG, LOADING DOSE
     Dates: start: 20100101
  2. ASPIRIN [Concomitant]
  3. RANEXA [Concomitant]
  4. EFFIENT [Suspect]
     Dosage: 10 MG, QD MAINTANCE DOSE
     Dates: start: 20100101
  5. CRESTOR [Concomitant]
  6. METOPROLOL [Concomitant]

REACTIONS (2)
  - PERCUTANEOUS CORONARY INTERVENTION [None]
  - CHEST PAIN [None]
